FAERS Safety Report 24264734 (Version 1)
Quarter: 2024Q3

REPORT INFORMATION
  Report Type: Spontaneous
  Country: US (occurrence: US)
  Receive Date: 20240829
  Receipt Date: 20240829
  Transmission Date: 20241017
  Serious: Yes (Other)
  Sender: PFIZER
  Company Number: US-PFIZER INC-202400244239

PATIENT
  Age: 67 Year
  Sex: Female

DRUGS (1)
  1. CIBINQO [Suspect]
     Active Substance: ABROCITINIB
     Indication: Dermatitis atopic
     Dosage: 100 MG, DAILY
     Route: 048

REACTIONS (5)
  - Autoimmune disorder [Unknown]
  - Osteoarthritis [Unknown]
  - Thyroid disorder [Unknown]
  - Vitamin B12 decreased [Unknown]
  - Condition aggravated [Unknown]
